FAERS Safety Report 16766082 (Version 1)
Quarter: 2019Q4

REPORT INFORMATION
  Report Type: Spontaneous
  Country: US (occurrence: US)
  Receive Date: 20190830
  Receipt Date: 20190830
  Transmission Date: 20200122
  Serious: Yes (Other)
  Sender: FDA-Public Use
  Company Number: None

PATIENT
  Sex: Female
  Weight: 69.85 kg

DRUGS (5)
  1. ZOLOFT [Concomitant]
     Active Substance: SERTRALINE HYDROCHLORIDE
  2. CLARITIN [Concomitant]
     Active Substance: LORATADINE
  3. PRENATAL VITAMINS [Concomitant]
     Active Substance: VITAMINS
  4. BAYER 60 MG ASPIRIN [Concomitant]
  5. PARAGARD T 380A [Suspect]
     Active Substance: COPPER

REACTIONS (5)
  - Pregnancy with contraceptive device [None]
  - Exposure during pregnancy [None]
  - Urinary tract infection [None]
  - Vomiting [None]
  - Nausea [None]
